FAERS Safety Report 4654492-3 (Version None)
Quarter: 2005Q2

REPORT INFORMATION
  Report Type: 
  Country: None (occurrence: None)
  Receive Date: 20050404
  Receipt Date: 20041208
  Transmission Date: 20051028
  Serious: No
  Sender: FDA-Public Use
  Company Number: USA041285607

PATIENT
  Sex: Male

DRUGS (4)
  1. CYMBALTA [Suspect]
     Indication: DIABETIC NEUROPATHY
     Dosage: 60 MG AT BEDTIME
     Dates: start: 20041202
  2. LEXAPRO [Concomitant]
  3. NEURONTIN (GABAPENTIN PFIZER) [Concomitant]
  4. ALLOPURINOL [Concomitant]

REACTIONS (2)
  - JOINT SWELLING [None]
  - PAIN [None]
